FAERS Safety Report 4944424-2 (Version None)
Quarter: 2006Q1

REPORT INFORMATION
  Report Type: 
  Country: None (occurrence: None)
  Receive Date: 20060315
  Receipt Date: 20060306
  Transmission Date: 20060701
  Serious: Yes (Hospitalization, Disabling)
  Sender: FDA-Public Use
  Company Number: US-MERCK-0603USA01553

PATIENT
  Age: 43 Year
  Sex: Female

DRUGS (2)
  1. VIOXX [Suspect]
     Route: 048
     Dates: start: 20030101
  2. CELEBREX [Concomitant]
     Route: 065

REACTIONS (11)
  - ANTIPHOSPHOLIPID SYNDROME [None]
  - AORTIC VALVE INCOMPETENCE [None]
  - BACK PAIN [None]
  - BLINDNESS TRANSIENT [None]
  - DYSLIPIDAEMIA [None]
  - DYSPNOEA [None]
  - DYSPNOEA PAROXYSMAL NOCTURNAL [None]
  - MITRAL VALVE INCOMPETENCE [None]
  - NAUSEA [None]
  - PAIN IN EXTREMITY [None]
  - PHOTOPHOBIA [None]
